FAERS Safety Report 23821766 (Version 2)
Quarter: 2024Q3

REPORT INFORMATION
  Report Type: Spontaneous
  Country: US (occurrence: US)
  Receive Date: 20240506
  Receipt Date: 20240710
  Transmission Date: 20241016
  Serious: Yes (Hospitalization, Other)
  Sender: ELI LILLY AND CO
  Company Number: US-ELI_LILLY_AND_COMPANY-US202404016256

PATIENT
  Age: 69 Year
  Sex: Female

DRUGS (2)
  1. MOUNJARO [Suspect]
     Active Substance: TIRZEPATIDE
     Indication: Product used for unknown indication
     Dosage: UNK UNK, UNKNOWN
     Route: 058
  2. OZEMPIC [Suspect]
     Active Substance: SEMAGLUTIDE
     Indication: Product used for unknown indication
     Dosage: UNK UNK, UNKNOWN
     Route: 065

REACTIONS (9)
  - Cerebrovascular accident [Unknown]
  - Diarrhoea [Unknown]
  - Diabetic ketoacidosis [Unknown]
  - Gait disturbance [Unknown]
  - Fall [Unknown]
  - Urinary tract infection [Unknown]
  - Dehydration [Unknown]
  - Anal incontinence [Unknown]
  - Urinary incontinence [Unknown]
